FAERS Safety Report 13549853 (Version 4)
Quarter: 2018Q1

REPORT INFORMATION
  Report Type: Report from Study
  Country: None (occurrence: US)
  Receive Date: 20170516
  Receipt Date: 20180124
  Transmission Date: 20180508
  Serious: Yes (Hospitalization)
  Sender: FDA-Public Use
  Company Number: US-ABBVIE-17K-163-1974226-00

PATIENT
  Age: 57 Year
  Sex: Female
  Weight: 90.8 kg

DRUGS (8)
  1. VITAMIN D3 [Concomitant]
     Active Substance: CHOLECALCIFEROL
     Indication: PRODUCT USED FOR UNKNOWN INDICATION
  2. LOVASTATIN. [Concomitant]
     Active Substance: LOVASTATIN
     Indication: PRODUCT USED FOR UNKNOWN INDICATION
  3. CYCLOBENZAPRINE. [Concomitant]
     Active Substance: CYCLOBENZAPRINE
     Indication: PRODUCT USED FOR UNKNOWN INDICATION
  4. METHOTREXATE. [Concomitant]
     Active Substance: METHOTREXATE
     Indication: PRODUCT USED FOR UNKNOWN INDICATION
  5. DULOXETINE. [Concomitant]
     Active Substance: DULOXETINE
     Indication: FIBROMYALGIA
  6. LOSARTAN. [Concomitant]
     Active Substance: LOSARTAN
     Indication: PRODUCT USED FOR UNKNOWN INDICATION
  7. HUMIRA [Suspect]
     Active Substance: ADALIMUMAB
     Indication: RHEUMATOID ARTHRITIS
     Route: 058
     Dates: start: 201610, end: 2017
  8. FOLIC ACID. [Concomitant]
     Active Substance: FOLIC ACID
     Indication: PRODUCT USED FOR UNKNOWN INDICATION

REACTIONS (15)
  - Vomiting [Recovered/Resolved]
  - Hyperhidrosis [Unknown]
  - Sinusitis [Recovering/Resolving]
  - Asthenia [Unknown]
  - Viral infection [Unknown]
  - Rheumatoid arthritis [Recovering/Resolving]
  - Pharyngitis streptococcal [Unknown]
  - Hiatus hernia [Recovered/Resolved]
  - Sinus disorder [Unknown]
  - Arthralgia [Unknown]
  - Hot flush [Unknown]
  - Fibromyalgia [Unknown]
  - Therapeutic response shortened [Unknown]
  - Nausea [Recovering/Resolving]
  - Injection site reaction [Unknown]

NARRATIVE: CASE EVENT DATE: 201707
